FAERS Safety Report 19758400 (Version 7)
Quarter: 2022Q1

REPORT INFORMATION
  Report Type: Spontaneous
  Country: US (occurrence: US)
  Receive Date: 20210828
  Receipt Date: 20220115
  Transmission Date: 20220423
  Serious: Yes (Life-Threatening, Hospitalization, Disabling, Other)
  Sender: FDA-Public Use
  Company Number: NVSC2021US191879

PATIENT
  Age: 50 Year
  Sex: Female

DRUGS (1)
  1. COSENTYX [Suspect]
     Active Substance: SECUKINUMAB
     Indication: Arthritis
     Dosage: UNK UNK, QW
     Route: 065
     Dates: start: 2019

REACTIONS (3)
  - Pulmonary embolism [Not Recovered/Not Resolved]
  - Dyspnoea [Unknown]
  - Bundle branch block [Unknown]
